FAERS Safety Report 20805504 (Version 1)
Quarter: 2022Q2

REPORT INFORMATION
  Report Type: Report from Study
  Country: US (occurrence: US)
  Receive Date: 20220510
  Receipt Date: 20220510
  Transmission Date: 20220721
  Serious: Yes (Other)
  Sender: FDA-Public Use
  Company Number: US-ABBVIE-22K-163-4385714-00

PATIENT
  Sex: Female

DRUGS (1)
  1. HUMIRA [Suspect]
     Active Substance: ADALIMUMAB
     Indication: Rheumatoid arthritis
     Route: 058

REACTIONS (6)
  - Suicidal ideation [Recovering/Resolving]
  - Weight increased [Recovering/Resolving]
  - Peripheral swelling [Unknown]
  - Neuropathy peripheral [Unknown]
  - Joint swelling [Recovering/Resolving]
  - Inflammatory marker increased [Unknown]
